FAERS Safety Report 7004227-4 (Version None)
Quarter: 2010Q3

REPORT INFORMATION
  Report Type: 
  Country: None (occurrence: None)
  Receive Date: 20100920
  Receipt Date: 20100223
  Transmission Date: 20110219
  Serious: No
  Sender: FDA-Public Use
  Company Number: US-WYE-H13815010

PATIENT
  Sex: Female

DRUGS (6)
  1. PRISTIQ [Suspect]
     Route: 048
     Dates: end: 20100101
  2. PRISTIQ [Suspect]
     Route: 048
     Dates: start: 20100101
  3. HYDROMORPHONE HCL [Concomitant]
  4. LORAZEPAM [Concomitant]
  5. FAMOTIDINE [Concomitant]
  6. LISINOPRIL [Concomitant]

REACTIONS (3)
  - RASH ERYTHEMATOUS [None]
  - RASH MACULAR [None]
  - RASH PRURITIC [None]
